FAERS Safety Report 16715846 (Version 4)
Quarter: 2020Q2

REPORT INFORMATION
  Report Type: Spontaneous
  Country: US (occurrence: US)
  Receive Date: 20190819
  Receipt Date: 20200508
  Transmission Date: 20200713
  Serious: No
  Sender: FDA-Public Use
  Company Number: US-PFIZER INC-2019353290

PATIENT
  Age: 65 Year
  Sex: Female

DRUGS (4)
  1. LYRICA [Suspect]
     Active Substance: PREGABALIN
     Indication: NEUROPATHY PERIPHERAL
  2. ROBAXIN-750 [Concomitant]
     Active Substance: METHOCARBAMOL
     Indication: MUSCULOSKELETAL PAIN
     Dosage: 750 MG, AS NEEDED
     Route: 048
     Dates: start: 20190722
  3. XANAX [Concomitant]
     Active Substance: ALPRAZOLAM
     Indication: GENERALISED ANXIETY DISORDER
     Dosage: 0.5 MG, 1X/DAY (AT BEDTIME)
     Route: 048
     Dates: start: 20190801
  4. LYRICA [Suspect]
     Active Substance: PREGABALIN
     Indication: PAIN
     Dosage: 200 MG, 3X/DAY
     Route: 048

REACTIONS (1)
  - Somnolence [Unknown]
